FAERS Safety Report 4559203-8 (Version None)
Quarter: 2005Q1

REPORT INFORMATION
  Report Type: 
  Country: None (occurrence: None)
  Receive Date: 20050124
  Receipt Date: 20050113
  Transmission Date: 20050727
  Serious: Yes (Other)
  Sender: FDA-Public Use
  Company Number: BE-JNJFOC-20050100923

PATIENT
  Sex: Male
  Weight: 50 kg

DRUGS (4)
  1. TOPAMAX [Suspect]
     Indication: EPILEPSY
     Route: 049
  2. FLUDROCORTISONE [Suspect]
     Indication: HYPOTENSION
     Route: 049
  3. DEPAKENE [Concomitant]
     Route: 049
  4. DEPAKENE [Concomitant]
     Indication: EPILEPSY
     Route: 049

REACTIONS (1)
  - CATARACT [None]
